FAERS Safety Report 6779482-6 (Version None)
Quarter: 2010Q2

REPORT INFORMATION
  Report Type: 
  Country: None (occurrence: None)
  Receive Date: 20100618
  Receipt Date: 20100610
  Transmission Date: 20101027
  Serious: Yes (Hospitalization)
  Sender: FDA-Public Use
  Company Number: GXKR2010GB06431

PATIENT
  Age: 72 Year

DRUGS (6)
  1. CITALOPRAM HYDROBROMIDE [Suspect]
     Indication: DEPRESSION
     Dosage: 5 MG, UNK
     Route: 048
     Dates: start: 20091101
  2. OLANZAPINE [Suspect]
     Indication: GRANDIOSITY
     Dosage: 40 MG, UNK
     Route: 048
     Dates: start: 20100301, end: 20100527
  3. DICLOFENAC SODIUM [Concomitant]
     Dosage: 50 MG, TID
     Route: 065
  4. FUROSEMIDE [Concomitant]
     Dosage: 40 MG, QD
     Route: 048
  5. MIRTAZAPINE [Concomitant]
     Dosage: 45 MG, QD
     Route: 048
  6. OMEPRAZOLE [Concomitant]
     Dosage: 20 MG, QD
     Route: 048

REACTIONS (1)
  - PARKINSONISM [None]
